FAERS Safety Report 6054864-9 (Version None)
Quarter: 2009Q1

REPORT INFORMATION
  Report Type: 
  Country: None (occurrence: None)
  Receive Date: 20090128
  Receipt Date: 20090117
  Transmission Date: 20090719
  Serious: Yes (Other)
  Sender: FDA-Public Use
  Company Number: BR-PFIZER INC-2008054142

PATIENT

DRUGS (3)
  1. CHAMPIX [Suspect]
     Indication: SMOKING CESSATION THERAPY
     Route: 048
     Dates: start: 20080614
  2. RIVOTRIL [Concomitant]
     Dates: start: 20080528
  3. PAMELOR [Concomitant]
     Dates: start: 20080528

REACTIONS (2)
  - ANXIETY [None]
  - DEPRESSION [None]
